FAERS Safety Report 16070037 (Version 2)
Quarter: 2020Q3

REPORT INFORMATION
  Report Type: Report from Study
  Country: NL (occurrence: NL)
  Receive Date: 20190314
  Receipt Date: 20200709
  Transmission Date: 20201102
  Serious: Yes (Hospitalization)
  Sender: FDA-Public Use
  Company Number: NL-TEVA-2018-NL-852033

PATIENT
  Age: 47 Year
  Sex: Female
  Weight: 74 kg

DRUGS (4)
  1. EPIRUBICIN [Suspect]
     Active Substance: EPIRUBICIN
     Dosage: 180 MG NOS, PART OF FEC CHEMOTHERAPY
     Route: 065
     Dates: start: 20171227
  2. CYCLOFOSFAMIDE [Suspect]
     Active Substance: CYCLOPHOSPHAMIDE
     Dosage: PART OF FEC CHEMOTHERAPY
     Route: 065
     Dates: start: 20171227
  3. 5?FU [Suspect]
     Active Substance: FLUOROURACIL
     Dosage: 900 MILLIGRAM DAILY; PART OF FEC CHEMOTHERAPY
     Route: 065
     Dates: start: 20171227
  4. LONQUEX 6 MG, OPLOSSING VOOR INJECTIE [Suspect]
     Active Substance: LIPEGFILGRASTIM
     Indication: CHEMOTHERAPY
     Route: 058
     Dates: start: 20171228

REACTIONS (7)
  - Myalgia [Recovered/Resolved]
  - Bone pain [Recovered/Resolved]
  - Influenza [Recovered/Resolved]
  - Pyrexia [Recovered/Resolved]
  - Chills [Recovered/Resolved]
  - Oropharyngeal pain [Recovered/Resolved]
  - Malaise [Recovered/Resolved]

NARRATIVE: CASE EVENT DATE: 20171231
